FAERS Safety Report 17733872 (Version 1)
Quarter: 2020Q2

REPORT INFORMATION
  Report Type: Spontaneous
  Country: US (occurrence: US)
  Receive Date: 20200501
  Receipt Date: 20200501
  Transmission Date: 20200714
  Serious: Yes (Other)
  Sender: FDA-Public Use
  Company Number: None

PATIENT
  Age: 33 Year
  Sex: Female
  Weight: 60.3 kg

DRUGS (2)
  1. OXYCODONE AND ACETAMINOPHEN [Suspect]
     Active Substance: ACETAMINOPHEN\OXYCODONE HYDROCHLORIDE
     Indication: PANCREATITIS CHRONIC
     Route: 048
  2. COLESTIPOL [Concomitant]
     Active Substance: COLESTIPOL

REACTIONS (2)
  - Inadequate analgesia [None]
  - Drug ineffective [None]

NARRATIVE: CASE EVENT DATE: 20200424
